FAERS Safety Report 6356089-6 (Version None)
Quarter: 2009Q3

REPORT INFORMATION
  Report Type: 
  Country: None (occurrence: None)
  Receive Date: 20090915
  Receipt Date: 20090911
  Transmission Date: 20100115
  Serious: Yes (Disabling, Other)
  Sender: FDA-Public Use
  Company Number: DE-BRISTOL-MYERS SQUIBB COMPANY-14703508

PATIENT
  Age: 61 Year
  Sex: Male
  Weight: 78 kg

DRUGS (4)
  1. ORENCIA [Suspect]
     Indication: RHEUMATOID ARTHRITIS
     Route: 042
     Dates: start: 20080923
  2. DELIX [Concomitant]
     Indication: HYPERTENSION
     Route: 048
  3. DELIX PLUS [Concomitant]
     Indication: HYPERTENSION
     Route: 048
  4. STEROIDS [Concomitant]

REACTIONS (1)
  - MYELOPROLIFERATIVE DISORDER [None]
